FAERS Safety Report 5531223-6 (Version None)
Quarter: 2007Q4

REPORT INFORMATION
  Report Type: 
  Country: None (occurrence: None)
  Receive Date: 20071130
  Receipt Date: 20071121
  Transmission Date: 20080405
  Serious: Yes (Disabling)
  Sender: FDA-Public Use
  Company Number: GB-MERCK-0711GBR00095

PATIENT
  Age: 87 Year
  Sex: Male

DRUGS (36)
  1. ZOCOR [Suspect]
     Indication: HYPERCHOLESTEROLAEMIA
     Route: 048
     Dates: start: 20070719, end: 20070804
  2. AMIODARONE [Suspect]
     Indication: ARRHYTHMIA
     Route: 048
  3. ALENDRONIC ACID [Concomitant]
     Route: 065
     Dates: start: 20070606
  4. ALENDRONIC ACID [Concomitant]
     Route: 065
     Dates: start: 20070412
  5. ALENDRONIC ACID [Concomitant]
     Route: 065
     Dates: start: 20070214
  6. ALENDRONIC ACID [Concomitant]
     Route: 065
     Dates: start: 20070723
  7. AMLODIPINE BESYLATE [Concomitant]
     Route: 065
     Dates: start: 20070606
  8. AMLODIPINE BESYLATE [Concomitant]
     Route: 065
     Dates: start: 20070214
  9. AMLODIPINE BESYLATE [Concomitant]
     Route: 065
     Dates: start: 20070418
  10. ASPIRIN [Concomitant]
     Route: 065
     Dates: start: 20070606
  11. ASPIRIN [Concomitant]
     Route: 065
     Dates: start: 20070808
  12. ASPIRIN [Concomitant]
     Route: 065
     Dates: start: 20070214
  13. ASPIRIN [Concomitant]
     Route: 065
     Dates: start: 20070418
  14. CALCIUM CARBONATE [Concomitant]
     Route: 065
     Dates: start: 20070606
  15. CALCIUM CARBONATE [Concomitant]
     Route: 065
     Dates: start: 20070808
  16. CALCIUM CARBONATE [Concomitant]
     Route: 065
     Dates: start: 20070214
  17. CALCIUM CARBONATE [Concomitant]
     Route: 065
     Dates: start: 20070418
  18. CITALOPRAM [Concomitant]
     Route: 065
     Dates: start: 20070606
  19. CITALOPRAM [Concomitant]
     Route: 065
     Dates: start: 20070418
  20. CLOPIDOGREL BISULFATE [Concomitant]
     Route: 065
     Dates: start: 20070809
  21. CLOPIDOGREL BISULFATE [Concomitant]
     Route: 065
     Dates: start: 20070625
  22. FERROUS SULFATE [Concomitant]
     Route: 065
     Dates: start: 20070807
  23. FUROSEMIDE [Concomitant]
     Route: 065
     Dates: start: 20070604
  24. FUROSEMIDE [Concomitant]
     Route: 065
     Dates: start: 20070809
  25. POTASSIUM BICARBONATE AND SODIUM ALGINATE [Concomitant]
     Route: 065
     Dates: start: 20070807
  26. COZAAR [Concomitant]
     Route: 065
     Dates: start: 20070606
  27. COZAAR [Concomitant]
     Route: 065
     Dates: start: 20070214
  28. COZAAR [Concomitant]
     Route: 065
     Dates: start: 20070418
  29. POLYETHYLENE GLYCOL 3350 AND POTASSIUM CHLORIDE AND SODIUM BICARBONATE [Concomitant]
     Route: 065
     Dates: start: 20070623
  30. SENNA [Concomitant]
     Route: 065
     Dates: start: 20070705
  31. SENNA [Concomitant]
     Route: 065
     Dates: start: 20070820
  32. TAMSULOSIN HYDROCHLORIDE [Concomitant]
     Route: 065
     Dates: start: 20070606
  33. TAMSULOSIN HYDROCHLORIDE [Concomitant]
     Route: 065
     Dates: start: 20070808
  34. TAMSULOSIN HYDROCHLORIDE [Concomitant]
     Route: 065
     Dates: start: 20070214
  35. TAMSULOSIN HYDROCHLORIDE [Concomitant]
     Route: 065
     Dates: start: 20070418
  36. ZOCOR [Concomitant]
     Route: 065
     Dates: start: 20070719

REACTIONS (3)
  - CONDITION AGGRAVATED [None]
  - DRUG INTERACTION [None]
  - MUSCULAR WEAKNESS [None]
